FAERS Safety Report 4801705-0 (Version None)
Quarter: 2005Q4

REPORT INFORMATION
  Report Type: 
  Country: None (occurrence: None)
  Receive Date: 20051018
  Receipt Date: 20051012
  Transmission Date: 20060501
  Serious: Yes (Hospitalization)
  Sender: FDA-Public Use
  Company Number: CH-GLAXOSMITHKLINE-B0397357A

PATIENT
  Age: 44 Year
  Sex: Female

DRUGS (8)
  1. DEROXAT [Suspect]
     Dosage: 60MG PER DAY
     Route: 048
  2. TOPAMAX [Suspect]
     Indication: PERSONALITY DISORDER
     Dosage: 100MG PER DAY
     Route: 048
     Dates: start: 20050308, end: 20050413
  3. QUILONORM [Suspect]
     Dates: end: 20050408
  4. DALMADORM [Concomitant]
     Dosage: 30MG PER DAY
     Dates: end: 20050413
  5. LORAZEPAM [Concomitant]
     Dosage: 4MG PER DAY
     Route: 048
     Dates: start: 20050426
  6. OLANZAPINE [Concomitant]
  7. LAMICTAL [Concomitant]
  8. PRAZINE [Concomitant]

REACTIONS (12)
  - ASTHENIA [None]
  - DIZZINESS [None]
  - FATIGUE [None]
  - GAIT DISTURBANCE [None]
  - HYPOTENSION [None]
  - HYPOTONIA [None]
  - PSYCHOMOTOR RETARDATION [None]
  - RESTLESSNESS [None]
  - SELF-INJURIOUS IDEATION [None]
  - SINUS BRADYCARDIA [None]
  - TREMOR [None]
  - VISUAL DISTURBANCE [None]
